FAERS Safety Report 6993690-0 (Version None)
Quarter: 2010Q3

REPORT INFORMATION
  Report Type: 
  Country: None (occurrence: None)
  Receive Date: 20100917
  Receipt Date: 20080117
  Transmission Date: 20110219
  Serious: Yes (Other)
  Sender: FDA-Public Use
  Company Number: US-ASTRAZENECA-2006UW21822

PATIENT
  Age: 19523 Day
  Sex: Female
  Weight: 94.6 kg

DRUGS (8)
  1. SEROQUEL [Suspect]
     Indication: DEPRESSION
     Dosage: 150 TO 900 MG
     Route: 048
     Dates: start: 20030323
  2. SEROQUEL [Suspect]
     Indication: BIPOLAR DISORDER
     Dosage: 150 TO 900 MG
     Route: 048
     Dates: start: 20030323
  3. SEROQUEL [Suspect]
     Route: 048
  4. SEROQUEL [Suspect]
     Route: 048
  5. GLUCOTROL [Concomitant]
     Route: 048
     Dates: start: 20020209
  6. GLUCOPHAGE [Concomitant]
     Route: 048
     Dates: start: 20030510
  7. PREDNISONE [Concomitant]
     Dosage: 40 TO 60 MG
     Route: 048
     Dates: start: 20020209
  8. PRINIVIL [Concomitant]
     Dosage: 5 TO 10 MG
     Route: 048
     Dates: start: 20060814

REACTIONS (3)
  - DIABETES MELLITUS [None]
  - DIABETES MELLITUS INADEQUATE CONTROL [None]
  - HYPERGLYCAEMIA [None]
